FAERS Safety Report 12968411 (Version 2)
Quarter: 2017Q1

REPORT INFORMATION
  Report Type: Spontaneous
  Country: US (occurrence: US)
  Receive Date: 20161123
  Receipt Date: 20170201
  Transmission Date: 20170428
  Serious: No
  Sender: FDA-Public Use
  Company Number: US-GLAXOSMITHKLINE-US2016172986

PATIENT
  Sex: Female

DRUGS (4)
  1. LEVOTHYROXINE. [Concomitant]
     Active Substance: LEVOTHYROXINE
  2. METFORMIN [Suspect]
     Active Substance: METFORMIN HYDROCHLORIDE
     Indication: PRODUCT USED FOR UNKNOWN INDICATION
     Dosage: UNK
     Dates: start: 2016
  3. IRBESARTAN. [Concomitant]
     Active Substance: IRBESARTAN
  4. TANZEUM [Suspect]
     Active Substance: ALBIGLUTIDE
     Indication: DIABETES MELLITUS
     Dosage: 30 MG, WE
     Route: 042
     Dates: start: 20160928

REACTIONS (11)
  - Pruritus [Not Recovered/Not Resolved]
  - Decreased appetite [Unknown]
  - Swelling [Not Recovered/Not Resolved]
  - Vomiting [Unknown]
  - Skin disorder [Recovered/Resolved]
  - Rash [Recovered/Resolved]
  - Nausea [Unknown]
  - Weight decreased [Recovered/Resolved]
  - Underdose [Unknown]
  - Device use error [Unknown]
  - Abdominal discomfort [Unknown]
